FAERS Safety Report 7490261-7 (Version None)
Quarter: 2011Q2

REPORT INFORMATION
  Report Type: 
  Country: None (occurrence: None)
  Receive Date: 20110517
  Receipt Date: 20110517
  Transmission Date: 20111010
  Serious: Yes (Hospitalization)
  Sender: FDA-Public Use
  Company Number: None

PATIENT
  Age: 56 Year
  Sex: Male
  Weight: 64 kg

DRUGS (2)
  1. VARENICLINE [Suspect]
     Indication: SMOKING CESSATION THERAPY
     Dosage: 1 MG BID PO
     Route: 048
     Dates: start: 20110419, end: 20110504
  2. BUPROPION HCL [Suspect]
     Indication: SMOKING CESSATION THERAPY
     Dosage: 300 MG EVERY DAY PO
     Route: 048
     Dates: start: 20110418, end: 20110504

REACTIONS (4)
  - BRADYCARDIA [None]
  - SYNCOPE [None]
  - TREMOR [None]
  - DIZZINESS [None]
